FAERS Safety Report 8762333 (Version 1)
Quarter: 2012Q4

REPORT INFORMATION
  Report Type: 
  Country: US (occurrence: US)
  Receive Date: 20120830
  Receipt Date: 20120830
  Transmission Date: 20130627
  Serious: Yes (Other)
  Sender: FDA-Public Use
  Company Number: US-ASTRAZENECA-2012SE60537

PATIENT
  Sex: Male

DRUGS (5)
  1. NEXIUM [Suspect]
     Indication: GASTROOESOPHAGEAL REFLUX DISEASE
     Route: 048
  2. LANTUS SOLO STAR [Concomitant]
  3. TRICOR [Concomitant]
  4. LEXAPRO [Concomitant]
  5. JANUMET [Concomitant]
     Dosage: 50/500 MG TWO TIMES A DAY

REACTIONS (6)
  - Cerebrovascular accident [Unknown]
  - Blood glucose increased [Unknown]
  - Blindness [Unknown]
  - Gastrooesophageal reflux disease [Unknown]
  - Hypertension [Unknown]
  - Intentional drug misuse [Unknown]
